FAERS Safety Report 4962324-9 (Version None)
Quarter: 2006Q2

REPORT INFORMATION
  Report Type: 
  Country: None (occurrence: None)
  Receive Date: 20060404
  Receipt Date: 20060322
  Transmission Date: 20061013
  Serious: Yes (Hospitalization)
  Sender: FDA-Public Use
  Company Number: 2006CG00558

PATIENT
  Age: 44 Year
  Sex: Female

DRUGS (3)
  1. MARCAINE [Suspect]
     Indication: LOCAL ANAESTHESIA
     Route: 053
     Dates: start: 20060312, end: 20060316
  2. MARCAINE [Suspect]
     Indication: POSTOPERATIVE ANALGESIA
     Route: 053
     Dates: start: 20060312, end: 20060316
  3. MARCAINE RACHIANESTHESIE [Concomitant]
     Indication: SPINAL ANAESTHESIA
     Route: 037
     Dates: start: 20060312, end: 20060312

REACTIONS (1)
  - CATHETER SITE HAEMORRHAGE [None]
